FAERS Safety Report 25078399 (Version 1)
Quarter: 2025Q1

REPORT INFORMATION
  Report Type: Spontaneous
  Country: US (occurrence: None)
  Receive Date: 20250313
  Receipt Date: 20250313
  Transmission Date: 20250409
  Serious: Yes (Other)
  Sender: FDA-CTU
  Company Number: None

PATIENT
  Age: 64 Year
  Sex: Female

DRUGS (6)
  1. ORENCIA [Suspect]
     Active Substance: ABATACEPT
     Indication: Rheumatoid arthritis
     Route: 058
     Dates: start: 20241217, end: 20250220
  2. KORLYM [Concomitant]
     Active Substance: MIFEPRISTONE
     Dates: start: 20230621
  3. PROLIA [Concomitant]
     Active Substance: DENOSUMAB
     Dates: start: 20210722
  4. potassium citrate solution [Concomitant]
     Dates: start: 20210521
  5. multivitamins plus zinc capsules [Concomitant]
     Dates: start: 20181001
  6. acetaminophen-codeine 300-30 mg tablets [Concomitant]
     Dates: start: 20181001

REACTIONS (3)
  - Blood pressure increased [None]
  - Loss of consciousness [None]
  - Dyspnoea [None]

NARRATIVE: CASE EVENT DATE: 20250220
